FAERS Safety Report 9220123 (Version 2)
Quarter: 2015Q4

REPORT INFORMATION
  Report Type: Report from Study
  Country: US (occurrence: US)
  Receive Date: 20130409
  Receipt Date: 20151028
  Transmission Date: 20160305
  Serious: Yes (Other)
  Sender: FDA-Public Use
  Company Number: US-ROCHE-1211363

PATIENT
  Age: 60 Year
  Sex: Female

DRUGS (5)
  1. ACTEMRA [Suspect]
     Active Substance: TOCILIZUMAB
     Route: 042
     Dates: start: 20130201, end: 201302
  2. RITUXAN [Suspect]
     Active Substance: RITUXIMAB
     Indication: RHEUMATOID ARTHRITIS
     Route: 042
  3. SOLU-MEDROL [Concomitant]
     Active Substance: METHYLPREDNISOLONE SODIUM SUCCINATE
     Indication: PREMEDICATION
  4. CLARITIN [Concomitant]
     Active Substance: LORATADINE
  5. ACTEMRA [Suspect]
     Active Substance: TOCILIZUMAB
     Indication: RHEUMATOID ARTHRITIS
     Route: 042
     Dates: start: 201211, end: 201302

REACTIONS (9)
  - Injection [Unknown]
  - Restless legs syndrome [Unknown]
  - Rash [Unknown]
  - Diabetes mellitus [Unknown]
  - Visual impairment [Not Recovered/Not Resolved]
  - Rash [Not Recovered/Not Resolved]
  - Knee operation [Unknown]
  - Pyrexia [Unknown]
  - Chills [Unknown]

NARRATIVE: CASE EVENT DATE: 201211
